FAERS Safety Report 12559882 (Version 2)
Quarter: 2016Q3

REPORT INFORMATION
  Report Type: Report from Study
  Country: US (occurrence: US)
  Receive Date: 20160715
  Receipt Date: 20160801
  Transmission Date: 20161109
  Serious: Yes (Other)
  Sender: FDA-Public Use
  Company Number: US-GILEAD-2016-0223545

PATIENT
  Age: 73 Year
  Sex: Male

DRUGS (4)
  1. RANEXA [Concomitant]
     Active Substance: RANOLAZINE
     Dosage: UNK
  2. AMBRISENTAN [Suspect]
     Active Substance: AMBRISENTAN
     Indication: PRODUCT USED FOR UNKNOWN INDICATION
     Dosage: 10 MG, QD
     Route: 065
     Dates: start: 20130610
  3. HCTZ [Concomitant]
     Active Substance: HYDROCHLOROTHIAZIDE
     Dosage: UNK
  4. METOPROLOL. [Concomitant]
     Active Substance: METOPROLOL
     Dosage: UNK

REACTIONS (7)
  - Urinary incontinence [Unknown]
  - Visual impairment [Unknown]
  - Dizziness [Unknown]
  - Loss of consciousness [Unknown]
  - Seizure [Unknown]
  - Hypotension [Unknown]
  - Dehydration [Unknown]

NARRATIVE: CASE EVENT DATE: 20160711
